FAERS Safety Report 4650422-9 (Version None)
Quarter: 2005Q2

REPORT INFORMATION
  Report Type: 
  Country: None (occurrence: None)
  Receive Date: 20050429
  Receipt Date: 20050416
  Transmission Date: 20051028
  Serious: Yes (Disabling, Other)
  Sender: FDA-Public Use
  Company Number: 2005060754

PATIENT
  Age: 78 Year
  Sex: Female

DRUGS (3)
  1. BEXTRA [Suspect]
     Indication: PAIN IN EXTREMITY
     Dosage: 1 TAB (DAILY), ORAL
     Route: 048
     Dates: start: 20050101, end: 20050101
  2. ANTIHYPERTENSIVES (ANTIHYPERTENSIVES) [Concomitant]
  3. ALL OTHER THERAPEUTIC PRODUCTS (ALL OTHER THERAPEUTIC PRODUCTS) [Concomitant]

REACTIONS (5)
  - CONDITION AGGRAVATED [None]
  - DIFFICULTY IN WALKING [None]
  - DRUG INEFFECTIVE [None]
  - ERYTHEMA [None]
  - VARICOSE VEIN [None]
